FAERS Safety Report 7520727-2 (Version None)
Quarter: 2011Q2

REPORT INFORMATION
  Report Type: 
  Country: None (occurrence: None)
  Receive Date: 20110603
  Receipt Date: 20101202
  Transmission Date: 20111010
  Serious: Yes (Hospitalization)
  Sender: FDA-Public Use
  Company Number: JP-BAYER-200913815BYL

PATIENT
  Age: 74 Year
  Sex: Male
  Weight: 63 kg

DRUGS (23)
  1. NEXAVAR [Suspect]
     Route: 048
     Dates: start: 20090511, end: 20090524
  2. NEXAVAR [Suspect]
     Route: 048
     Dates: start: 20091026, end: 20091112
  3. NEXAVAR [Suspect]
     Indication: RENAL CELL CARCINOMA
     Route: 048
     Dates: start: 20081208, end: 20081219
  4. NEXAVAR [Suspect]
     Route: 048
     Dates: start: 20090407, end: 20090420
  5. JUZENTAIHOTO [Concomitant]
     Dosage: 7.5 G, QD
     Route: 048
     Dates: start: 20081204, end: 20090831
  6. HIRUDOID [Concomitant]
     Indication: PROPHYLAXIS
     Dosage: 10 G, QD
     Route: 061
     Dates: start: 20081205, end: 20090301
  7. PHYSIO [Concomitant]
     Dosage: 500 ML (DAILY DOSE), , INTRAVENOUS
     Route: 042
     Dates: start: 20091016, end: 20091022
  8. NEXAVAR [Suspect]
     Route: 048
     Dates: start: 20090608, end: 20090621
  9. NEXAVAR [Suspect]
     Route: 048
     Dates: start: 20090721, end: 20090831
  10. NEXAVAR [Suspect]
     Route: 048
     Dates: start: 20091202
  11. GLYCYRON [Concomitant]
     Dosage: 3 DF (DAILY DOSE), , ORAL
     Route: 048
     Dates: start: 20081121, end: 20091012
  12. MARZULENE S [Concomitant]
     Dosage: 1.5 G, QD
     Route: 048
     Dates: start: 20081121, end: 20091012
  13. KENALOG [Concomitant]
     Dosage: 2 G, UNK
     Route: 061
     Dates: start: 20090206, end: 20090210
  14. ALMETA [Concomitant]
     Dosage: 5 G (DAILY DOSE), , TOPICAL
     Route: 061
     Dates: start: 20090818, end: 20090825
  15. NEXAVAR [Suspect]
     Route: 048
     Dates: start: 20090228, end: 20090324
  16. NEXAVAR [Suspect]
     Dosage: 400 MG, QD
     Route: 048
     Dates: start: 20090109, end: 20090206
  17. NEXAVAR [Suspect]
     Route: 048
     Dates: start: 20090915, end: 20091007
  18. PROHEPARUM [Concomitant]
     Dosage: 3 DF, QD
     Route: 048
     Dates: start: 20081121, end: 20091012
  19. ALESION [Concomitant]
     Dosage: 20 MG (DAILY DOSE), , ORAL
     Route: 048
     Dates: start: 20090818, end: 20090831
  20. DERMOVATE [Concomitant]
     Dosage: 5 G (DAILY DOSE), , TOPICAL
     Route: 061
     Dates: start: 20090901, end: 20090908
  21. NEXAVAR [Suspect]
     Dosage: 400 MG (DAILY DOSE), , ORAL
     Route: 048
     Dates: start: 20090325, end: 20090406
  22. FERROUS CITRATE [Concomitant]
     Dosage: 100 MG (DAILY DOSE), , ORAL
     Route: 048
     Dates: start: 20081114, end: 20081219
  23. EBASTINE [Concomitant]
     Dosage: 10 MG (DAILY DOSE), , ORAL
     Route: 048
     Dates: start: 20090901, end: 20090914

REACTIONS (11)
  - GRANULOCYTE COUNT DECREASED [None]
  - BLOOD AMYLASE INCREASED [None]
  - HYPERTENSION [None]
  - STOMATITIS [None]
  - BLOOD PRESSURE INCREASED [None]
  - THROMBOCYTOPENIA [None]
  - PALMAR-PLANTAR ERYTHRODYSAESTHESIA SYNDROME [None]
  - TOXIC SKIN ERUPTION [None]
  - PANCREATIC ENZYMES INCREASED [None]
  - ENTEROCOLITIS [None]
  - SUBILEUS [None]
